FAERS Safety Report 8010568-4 (Version None)
Quarter: 2011Q4

REPORT INFORMATION
  Report Type: 
  Country: None (occurrence: None)
  Receive Date: 20111228
  Receipt Date: 20111214
  Transmission Date: 20120403
  Serious: Yes (Hospitalization, Other)
  Sender: FDA-Public Use
  Company Number: PHBS2002AU11644

PATIENT
  Sex: Male

DRUGS (6)
  1. VENTOLIN [Concomitant]
     Dosage: UNK,
  2. CLOZARIL [Suspect]
     Dates: start: 20090101
  3. ATROPINE [Concomitant]
     Dosage: UNK,
     Route: 060
  4. CLOZARIL [Suspect]
     Indication: SCHIZOPHRENIA
     Dosage: 650 MG, DAILY
     Route: 048
     Dates: start: 20030101
  5. VALPROATE SODIUM [Concomitant]
     Dosage: 1000 MG, BID
     Route: 048
  6. BECLOMETHASONE DIPROPIONATE [Concomitant]
     Dosage: UNK,

REACTIONS (2)
  - SALIVARY GLAND ENLARGEMENT [None]
  - PAROTID ABSCESS [None]
